FAERS Safety Report 8255580-5 (Version None)
Quarter: 2012Q2

REPORT INFORMATION
  Report Type: 
  Country: None (occurrence: None)
  Receive Date: 20120403
  Receipt Date: 20120326
  Transmission Date: 20120825
  Serious: Yes (Life-Threatening, Hospitalization)
  Sender: FDA-Public Use
  Company Number: FR-ASTRAZENECA-2012SE21333

PATIENT
  Age: 58 Year
  Sex: Male

DRUGS (8)
  1. SUFENTANIL CITRATE [Suspect]
     Indication: ANAESTHESIA
     Route: 042
     Dates: start: 20120319, end: 20120319
  2. ROCURONIUM BROMIDE [Suspect]
     Indication: ANAESTHESIA
     Route: 042
     Dates: start: 20120319, end: 20120319
  3. ATARAX [Concomitant]
  4. CEFOXITIN [Suspect]
     Indication: ANTIBIOTIC PROPHYLAXIS
     Route: 042
     Dates: start: 20120319, end: 20120319
  5. ESCITALOPRAM OXALATE [Concomitant]
  6. DIPRIVAN [Suspect]
     Indication: ANAESTHESIA
     Route: 042
     Dates: start: 20120319, end: 20120319
  7. DESFLURANE [Suspect]
     Indication: ANAESTHESIA
     Route: 055
     Dates: start: 20120319, end: 20120319
  8. SEVOFLURANE [Suspect]
     Indication: ANAESTHESIA
     Route: 055
     Dates: start: 20120319, end: 20120319

REACTIONS (1)
  - ANAPHYLACTIC SHOCK [None]
